FAERS Safety Report 15569157 (Version 2)
Quarter: 2018Q4

REPORT INFORMATION
  Report Type: Report from Study
  Country: US (occurrence: US)
  Receive Date: 20181031
  Receipt Date: 20181213
  Transmission Date: 20190205
  Serious: Yes (Other)
  Sender: FDA-Public Use
  Company Number: PHEH2018US045236

PATIENT
  Sex: Male

DRUGS (2)
  1. COSENTYX [Suspect]
     Active Substance: SECUKINUMAB
     Indication: PSORIASIS
     Dosage: 300 MG, QW
     Route: 058
  2. COSENTYX [Suspect]
     Active Substance: SECUKINUMAB
     Dosage: 150 MG, Q2MO
     Route: 058

REACTIONS (6)
  - Limb discomfort [Unknown]
  - Suicide attempt [Unknown]
  - Constipation [Recovering/Resolving]
  - Therapeutic response shortened [Unknown]
  - Paraesthesia [Recovered/Resolved]
  - Pain [Recovered/Resolved]
